FAERS Safety Report 12555119 (Version 4)
Quarter: 2019Q2

REPORT INFORMATION
  Report Type: Report from Study
  Country: DE (occurrence: DE)
  Receive Date: 20160714
  Receipt Date: 20190513
  Transmission Date: 20190711
  Serious: Yes (Hospitalization, Other)
  Sender: FDA-Public Use
  Company Number: DE-ROCHE-1787648

PATIENT
  Age: 49 Year
  Sex: Female
  Weight: 50 kg

DRUGS (17)
  1. CAPECITABINE. [Suspect]
     Active Substance: CAPECITABINE
     Route: 048
     Dates: start: 20151223, end: 20160106
  2. LYRICA [Concomitant]
     Active Substance: PREGABALIN
     Indication: ARTHRALGIA
     Route: 048
     Dates: start: 20160623
  3. CLEXANE [Concomitant]
     Active Substance: ENOXAPARIN SODIUM
     Indication: THROMBOSIS PROPHYLAXIS
     Route: 058
     Dates: start: 20151214, end: 20151226
  4. DEXAMETHASON [DEXAMETHASONE] [Concomitant]
     Active Substance: DEXAMETHASONE
     Dosage: 1-0.5-0
     Route: 048
     Dates: start: 20160624, end: 20160626
  5. CAPECITABINE. [Suspect]
     Active Substance: CAPECITABINE
     Indication: BREAST CANCER
     Route: 048
     Dates: start: 20150122, end: 20160224
  6. CAPECITABINE. [Suspect]
     Active Substance: CAPECITABINE
     Route: 048
     Dates: start: 20160211, end: 20160224
  7. PALLADON [Concomitant]
     Active Substance: HYDROMORPHONE
     Indication: ARTHRALGIA
     Route: 048
     Dates: start: 20160623
  8. DEXAMETHASON [DEXAMETHASONE] [Concomitant]
     Active Substance: DEXAMETHASONE
     Indication: PROPHYLAXIS
     Dosage: 1-1/2-0
     Route: 048
     Dates: start: 20160602, end: 20160623
  9. BEVACIZUMAB. [Suspect]
     Active Substance: BEVACIZUMAB
     Indication: BREAST CANCER
     Route: 042
     Dates: start: 20151223, end: 20160531
  10. BEVACIZUMAB. [Suspect]
     Active Substance: BEVACIZUMAB
     Dosage: LAST DOSE PRIOR TO DYSPNEA
     Route: 042
     Dates: start: 20160531
  11. BEVACIZUMAB. [Suspect]
     Active Substance: BEVACIZUMAB
     Route: 042
     Dates: start: 20160510
  12. CAPECITABINE. [Suspect]
     Active Substance: CAPECITABINE
     Dosage: MOST RECENT DOSE OF CAPECITABINE PRIOR TO SAE: FEAR OF GRAND MAL SEIZURE AND DYSPNEA
     Route: 048
     Dates: start: 20160303, end: 20160531
  13. CLEXANE [Concomitant]
     Active Substance: ENOXAPARIN SODIUM
     Dosage: 0.4 ML
     Route: 058
     Dates: start: 20160602, end: 20160623
  14. DEXAMETHASON [DEXAMETHASONE] [Concomitant]
     Active Substance: DEXAMETHASONE
     Dosage: 1-0.5-0
     Route: 048
     Dates: start: 20160627
  15. BEVACIZUMAB. [Suspect]
     Active Substance: BEVACIZUMAB
     Route: 042
     Dates: start: 20160211
  16. LYRICA [Concomitant]
     Active Substance: PREGABALIN
     Indication: PAIN IN EXTREMITY
  17. PALLADON [Concomitant]
     Active Substance: HYDROMORPHONE
     Indication: PAIN IN EXTREMITY

REACTIONS (16)
  - Hypokalaemia [Recovered/Resolved]
  - Dyspepsia [Recovered/Resolved]
  - Fear of disease [Recovered/Resolved]
  - Abdominal pain upper [Recovered/Resolved]
  - Palmar-plantar erythrodysaesthesia syndrome [Recovered/Resolved]
  - Arthralgia [Not Recovered/Not Resolved]
  - Muscle spasms [Not Recovered/Not Resolved]
  - Blood alkaline phosphatase increased [Not Recovered/Not Resolved]
  - Diarrhoea [Recovered/Resolved]
  - Generalised tonic-clonic seizure [Recovered/Resolved]
  - Aspartate aminotransferase increased [Not Recovered/Not Resolved]
  - Dyspnoea [Not Recovered/Not Resolved]
  - Hypertension [Not Recovered/Not Resolved]
  - Pain in extremity [Not Recovered/Not Resolved]
  - Gamma-glutamyltransferase increased [Not Recovered/Not Resolved]
  - Blood lactate dehydrogenase increased [Recovered/Resolved]

NARRATIVE: CASE EVENT DATE: 20160108
